FAERS Safety Report 8049918-1 (Version None)
Quarter: 2012Q1

REPORT INFORMATION
  Report Type: 
  Country: None (occurrence: None)
  Receive Date: 20120117
  Receipt Date: 20120109
  Transmission Date: 20120608
  Serious: Yes (Other)
  Sender: FDA-Public Use
  Company Number: GB-B.I. PHARMACEUTICALS,INC./RIDGEFIELD-2011-UK-01165UK

PATIENT
  Age: 69 Year
  Sex: Male

DRUGS (4)
  1. PRADAXA [Suspect]
     Indication: HIP ARTHROPLASTY
     Dosage: 220 MG
     Route: 048
     Dates: start: 20111012
  2. TAMSULOSIN HCL [Concomitant]
     Indication: LOWER URINARY TRACT SYMPTOMS
     Dosage: 400 MCG
     Route: 048
     Dates: start: 20070101
  3. LEVOTHYROXINE SODIUM [Concomitant]
     Indication: HYPOTHYROIDISM
     Dosage: 125 MCG
     Route: 048
     Dates: start: 20060101
  4. LISINOPRIL [Concomitant]
     Indication: HYPERTENSION
     Dosage: 10 MG
     Route: 048
     Dates: start: 20020101

REACTIONS (5)
  - CHROMATURIA [None]
  - ALANINE AMINOTRANSFERASE INCREASED [None]
  - JAUNDICE [None]
  - BILIRUBIN URINE [None]
  - BLOOD ALKALINE PHOSPHATASE INCREASED [None]
